FAERS Safety Report 6988930-8 (Version None)
Quarter: 2010Q3

REPORT INFORMATION
  Report Type: 
  Country: None (occurrence: None)
  Receive Date: 20100916
  Receipt Date: 20090803
  Transmission Date: 20110219
  Serious: Yes (Hospitalization)
  Sender: FDA-Public Use
  Company Number: FR-PFIZER INC-2009249356

PATIENT
  Age: 82 Year
  Sex: Female

DRUGS (3)
  1. LYRICA [Suspect]
     Indication: PAIN IN EXTREMITY
     Dosage: 25 MG, 3X/DAY
     Route: 048
     Dates: start: 20090609, end: 20090611
  2. SOLU-MEDROL [Suspect]
     Indication: CHRONIC OBSTRUCTIVE PULMONARY DISEASE
     Dosage: UNK
     Route: 051
  3. AMITRIPTYLINE HCL [Suspect]
     Indication: PAIN IN EXTREMITY
     Dosage: 15 DROPS, 1X/DAY
     Route: 048
     Dates: start: 20090610

REACTIONS (2)
  - AGGRESSION [None]
  - HALLUCINATION, VISUAL [None]
